FAERS Safety Report 20391460 (Version 7)
Quarter: 2022Q2

REPORT INFORMATION
  Report Type: Other
  Country: DE (occurrence: DE)
  Receive Date: 20220128
  Receipt Date: 20220519
  Transmission Date: 20220721
  Serious: Yes (Other)
  Sender: FDA-Public Use
  Company Number: DE-MACLEODS PHARMACEUTICALS US LTD-MAC2022034184

PATIENT

DRUGS (50)
  1. CLOPIDOGREL [Suspect]
     Active Substance: CLOPIDOGREL BISULFATE
     Indication: Product used for unknown indication
     Dosage: UNK UNK, BID (1-0-1)
     Route: 065
     Dates: start: 20201210
  2. TAMSULOSIN [Suspect]
     Active Substance: TAMSULOSIN
     Indication: Product used for unknown indication
     Dosage: UNK
     Route: 065
  3. ALBUTEROL [Suspect]
     Active Substance: ALBUTEROL
     Indication: Dyspnoea
     Dosage: UNK, START AND END DATE: 2018 (INHALED VIA SPACER WITH PAEDIATRIC MASK)
     Route: 055
  4. ALBUTEROL [Suspect]
     Active Substance: ALBUTEROL
     Indication: Pneumothorax
  5. ALBUTEROL [Suspect]
     Active Substance: ALBUTEROL
     Indication: Secretion discharge
  6. ALBUTEROL [Suspect]
     Active Substance: ALBUTEROL
     Indication: Nasopharyngitis
  7. ALBUTEROL [Suspect]
     Active Substance: ALBUTEROL
     Indication: Cough
  8. ALBUTEROL [Suspect]
     Active Substance: ALBUTEROL
     Indication: Dysphonia
  9. ALBUTEROL [Suspect]
     Active Substance: ALBUTEROL
     Indication: Chest discomfort
  10. IBUPROFEN [Suspect]
     Active Substance: IBUPROFEN
     Indication: Product used for unknown indication
     Dosage: UNK UNK, PRN
     Route: 065
  11. BISOPROLOL [Suspect]
     Active Substance: BISOPROLOL
     Indication: Product used for unknown indication
     Dosage: UNK, QD(1-0-0)
     Route: 065
     Dates: start: 20201210
  12. REPATHA [Suspect]
     Active Substance: EVOLOCUMAB
     Indication: Product used for unknown indication
     Dosage: UNK(PRE-FILLED SYRINGE, EVERY 3 WEEK)
     Route: 065
  13. MAGNESIUM OROTATE [Suspect]
     Active Substance: MAGNESIUM OROTATE
     Indication: Product used for unknown indication
     Dosage: UNK, TID, (3-2-3)
     Route: 065
  14. ACETIC ACID\DELTAMETHRIN [Suspect]
     Active Substance: ACETIC ACID\DELTAMETHRIN
     Indication: Product used for unknown indication
     Dosage: UNK(STRENGTH: 10)
     Route: 065
  15. MOMETASONE [Suspect]
     Active Substance: MOMETASONE
     Indication: Product used for unknown indication
     Dosage: UNK, PRN
     Route: 065
  16. SOAP [Suspect]
     Active Substance: SOAP
     Indication: Product used for unknown indication
     Dosage: UNK
     Route: 065
  17. MOMETASONE FUROATE [Suspect]
     Active Substance: MOMETASONE FUROATE
     Indication: Product used for unknown indication
     Dosage: UNK UNK, BID, 2 PUFFS (1-0-1) NASAL SPRAY
     Route: 065
  18. MOMETASONE FUROATE [Suspect]
     Active Substance: MOMETASONE FUROATE
     Dosage: UNK, PRN AS NECESSARY (CREAM)
     Route: 065
  19. BIOTIN [Suspect]
     Active Substance: BIOTIN
     Indication: Product used for unknown indication
     Dosage: UNK UNK, QD (1-0-0)
     Route: 065
  20. CRESTOR [Suspect]
     Active Substance: ROSUVASTATIN CALCIUM
     Indication: Product used for unknown indication
     Dosage: UNK
     Route: 065
  21. FLUTICASONE PROPIONATE\SALMETEROL XINAFOATE [Suspect]
     Active Substance: FLUTICASONE PROPIONATE\SALMETEROL XINAFOATE
     Indication: Pneumothorax
     Dosage: UNK, START AND END DATE: 2018, UNKNOWN FREQ. (INHALED VIA SPACER WITH PAEDIATRIC MASK)
     Route: 055
  22. FLUTICASONE PROPIONATE\SALMETEROL XINAFOATE [Suspect]
     Active Substance: FLUTICASONE PROPIONATE\SALMETEROL XINAFOATE
     Indication: Cough
     Dosage: UNK, START DATE IN 2018 AND STOP DATE IN 2018
     Route: 065
  23. FLUTICASONE PROPIONATE\SALMETEROL XINAFOATE [Suspect]
     Active Substance: FLUTICASONE PROPIONATE\SALMETEROL XINAFOATE
     Indication: Nasopharyngitis
     Dosage: UNK
     Route: 065
  24. FLUTICASONE PROPIONATE\SALMETEROL XINAFOATE [Suspect]
     Active Substance: FLUTICASONE PROPIONATE\SALMETEROL XINAFOATE
     Indication: Dysphonia
  25. FLUTICASONE PROPIONATE\SALMETEROL XINAFOATE [Suspect]
     Active Substance: FLUTICASONE PROPIONATE\SALMETEROL XINAFOATE
     Indication: Dyspnoea
  26. FLUTICASONE PROPIONATE\SALMETEROL XINAFOATE [Suspect]
     Active Substance: FLUTICASONE PROPIONATE\SALMETEROL XINAFOATE
     Indication: Secretion discharge
  27. COLESEVELAM HYDROCHLORIDE [Suspect]
     Active Substance: COLESEVELAM HYDROCHLORIDE
     Indication: Product used for unknown indication
     Dosage: UNK
     Route: 065
  28. GINKGO [Suspect]
     Active Substance: GINKGO
     Indication: Product used for unknown indication
     Dosage: UNK
     Route: 065
  29. ATROVENT [Suspect]
     Active Substance: IPRATROPIUM BROMIDE
     Indication: Secretion discharge
     Dosage: UNK, START AND END DATE: 2018
     Route: 055
  30. ATROVENT [Suspect]
     Active Substance: IPRATROPIUM BROMIDE
     Indication: Dyspnoea
  31. ATROVENT [Suspect]
     Active Substance: IPRATROPIUM BROMIDE
     Indication: Cough
  32. ATROVENT [Suspect]
     Active Substance: IPRATROPIUM BROMIDE
     Indication: Pneumothorax
  33. ATROVENT [Suspect]
     Active Substance: IPRATROPIUM BROMIDE
     Indication: Nasopharyngitis
  34. ATROVENT [Suspect]
     Active Substance: IPRATROPIUM BROMIDE
     Indication: Dysphonia
  35. PRALUENT [Suspect]
     Active Substance: ALIROCUMAB
     Indication: Product used for unknown indication
     Dosage: UNK (STRENGTH: 75)
     Route: 065
  36. ASPIRIN [Suspect]
     Active Substance: ASPIRIN
     Indication: Product used for unknown indication
     Dosage: UNK(STRENGTH: 100)
     Route: 065
  37. VITAMIN E [Suspect]
     Active Substance: .ALPHA.-TOCOPHEROL
     Indication: Product used for unknown indication
     Dosage: UNK, Q2W
     Route: 065
  38. CALCIUM PANTOTHENATE [Suspect]
     Active Substance: CALCIUM PANTOTHENATE
     Indication: Product used for unknown indication
     Dosage: UNK UNK, BID (2-0-1)
     Route: 065
  39. CALCIUM CARBONATE [Suspect]
     Active Substance: CALCIUM CARBONATE
     Indication: Product used for unknown indication
     Dosage: UNK UNK, BID(1-0-1)
     Route: 065
  40. AMBROXOL HYDROCHLORIDE [Suspect]
     Active Substance: AMBROXOL HYDROCHLORIDE
     Indication: Product used for unknown indication
     Dosage: UNK
     Route: 065
  41. XARELTO [Suspect]
     Active Substance: RIVAROXABAN
     Indication: Product used for unknown indication
     Dosage: UNK
     Route: 065
  42. HERBALS [Suspect]
     Active Substance: HERBALS
     Indication: Product used for unknown indication
     Dosage: UNK
     Route: 065
  43. HERBALS\PHENYL SALICYLATE [Suspect]
     Active Substance: HERBALS\PHENYL SALICYLATE
     Indication: Asthma
     Dosage: 10 DROP, BID (1-0-1)
     Route: 065
  44. HERBALS\PHENYL SALICYLATE [Suspect]
     Active Substance: HERBALS\PHENYL SALICYLATE
     Indication: Bronchitis
  45. MAGNESIUM ASPARTATE\POTASSIUM ASPARTATE [Suspect]
     Active Substance: MAGNESIUM ASPARTATE\POTASSIUM ASPARTATE
     Indication: Product used for unknown indication
     Dosage: UNK
     Route: 065
  46. VITAMIN D [Suspect]
     Active Substance: VITAMIN D NOS
     Indication: Product used for unknown indication
     Dosage: UNK, Q.W. (20,000 I.E)
     Route: 065
  47. CIALIS [Suspect]
     Active Substance: TADALAFIL
     Indication: Product used for unknown indication
     Dosage: UNK
     Route: 065
  48. VOLTAREN [Suspect]
     Active Substance: DICLOFENAC SODIUM
     Indication: Product used for unknown indication
     Dosage: UNK UNK, PRN
     Route: 065
  49. ASPIRIN CALCIUM [Suspect]
     Active Substance: ASPIRIN CALCIUM
     Indication: Product used for unknown indication
     Dosage: UNK
     Route: 065
  50. PREDNISOLONE [Concomitant]
     Active Substance: PREDNISOLONE
     Indication: Product used for unknown indication
     Dosage: UNK; FOR 6 DAYS
     Route: 065

REACTIONS (21)
  - Atrial fibrillation [Recovered/Resolved]
  - Muscle spasms [Unknown]
  - Obstructive airways disorder [Unknown]
  - Eosinophilia [Unknown]
  - Brain natriuretic peptide increased [Unknown]
  - Coronary artery disease [Unknown]
  - Sensation of foreign body [Unknown]
  - Dyspnoea [Unknown]
  - Wheezing [Unknown]
  - Myoglobin blood increased [Unknown]
  - Obstructive sleep apnoea syndrome [Unknown]
  - Chest discomfort [Unknown]
  - Cough [Not Recovered/Not Resolved]
  - Dyspnoea exertional [Unknown]
  - Plantar fasciitis [Unknown]
  - Nasopharyngitis [Unknown]
  - Fractional exhaled nitric oxide increased [Recovered/Resolved]
  - Cardiac disorder [Unknown]
  - Dysphonia [Unknown]
  - Secretion discharge [Unknown]
  - Exostosis [Unknown]

NARRATIVE: CASE EVENT DATE: 20200320
